FAERS Safety Report 21139730 (Version 2)
Quarter: 2022Q3

REPORT INFORMATION
  Report Type: Spontaneous
  Country: JP (occurrence: JP)
  Receive Date: 20220727
  Receipt Date: 20220822
  Transmission Date: 20221026
  Serious: Yes (Other)
  Sender: FDA-Public Use
  Company Number: JP-SUN PHARMACEUTICAL INDUSTRIES LTD-2022RR-346197

PATIENT
  Age: 70 Year
  Sex: Female

DRUGS (5)
  1. IMATINIB [Suspect]
     Active Substance: IMATINIB
     Indication: Breast cancer metastatic
     Dosage: 400 MILLIGRAM, DAILY
     Route: 065
  2. IMATINIB [Suspect]
     Active Substance: IMATINIB
     Dosage: 200 MILLIGRAM, DAILY
     Route: 065
  3. IMATINIB [Suspect]
     Active Substance: IMATINIB
     Dosage: 200 MILLIGRAM, DAILY
     Route: 065
  4. IMATINIB [Suspect]
     Active Substance: IMATINIB
     Dosage: 300 MILLIGRAM, DAILY
     Route: 065
  5. PACLITAXEL [Suspect]
     Active Substance: PACLITAXEL
     Indication: Breast cancer metastatic
     Dosage: 80 MILLIGRAM/SQ. METER, WEEKLY
     Route: 065

REACTIONS (10)
  - Disease recurrence [Unknown]
  - Therapeutic product effect incomplete [Unknown]
  - Malignant neoplasm progression [Unknown]
  - Myalgia [Unknown]
  - Nausea [Unknown]
  - Rash [Unknown]
  - Oedema [Unknown]
  - Liver disorder [Unknown]
  - Diarrhoea [Unknown]
  - Muscle spasticity [Unknown]
